FAERS Safety Report 26169521 (Version 1)
Quarter: 2025Q4

REPORT INFORMATION
  Report Type: Spontaneous
  Country: EU (occurrence: EU)
  Receive Date: 20251217
  Receipt Date: 20251217
  Transmission Date: 20260117
  Serious: Yes (Hospitalization)
  Sender: PFIZER
  Company Number: EU-SANDOZ-SDZ2025DE092388

PATIENT
  Sex: Male

DRUGS (14)
  1. METHOTREXATE SODIUM [Suspect]
     Active Substance: METHOTREXATE SODIUM
     Indication: Spondylitis
     Dosage: 15 MG
     Route: 058
     Dates: start: 20201019
  2. METHOTREXATE SODIUM [Suspect]
     Active Substance: METHOTREXATE SODIUM
     Dosage: 15 MG
     Route: 058
     Dates: start: 20201019, end: 20210412
  3. NAPROXEN [Suspect]
     Active Substance: NAPROXEN
     Indication: Spondylitis
     Dosage: 1000 MG
     Route: 065
     Dates: start: 20200203
  4. NAPROXEN [Suspect]
     Active Substance: NAPROXEN
     Dosage: 1000 MG
     Route: 065
     Dates: start: 20200713
  5. NAPROXEN [Suspect]
     Active Substance: NAPROXEN
     Dosage: 1000 MG
     Route: 065
     Dates: start: 20210104
  6. NAPROXEN [Suspect]
     Active Substance: NAPROXEN
     Dosage: 1000 MG
     Route: 065
     Dates: start: 20210705
  7. NAPROXEN [Suspect]
     Active Substance: NAPROXEN
     Dosage: 1000 MG
     Route: 065
     Dates: start: 20220426
  8. NAPROXEN [Suspect]
     Active Substance: NAPROXEN
     Dosage: 1000 MG
     Route: 065
     Dates: start: 20221010
  9. NAPROXEN [Suspect]
     Active Substance: NAPROXEN
     Dosage: 1000 MG
     Route: 065
     Dates: start: 20230417
  10. NAPROXEN [Suspect]
     Active Substance: NAPROXEN
     Dosage: 1000 MG
     Route: 065
     Dates: start: 20231009
  11. NAPROXEN [Suspect]
     Active Substance: NAPROXEN
     Dosage: 1000 MG
     Route: 065
     Dates: start: 20240205
  12. NAPROXEN [Suspect]
     Active Substance: NAPROXEN
     Dosage: 1000 MG
     Route: 065
     Dates: start: 20240708
  13. NAPROXEN [Suspect]
     Active Substance: NAPROXEN
     Dosage: 1000 MG
     Route: 065
     Dates: start: 20250113
  14. NAPROXEN [Suspect]
     Active Substance: NAPROXEN
     Dosage: 1000 MG
     Route: 065
     Dates: start: 20250701

REACTIONS (1)
  - Coronary artery disease [Unknown]

NARRATIVE: CASE EVENT DATE: 20241113
